FAERS Safety Report 14213485 (Version 2)
Quarter: 2017Q4

REPORT INFORMATION
  Report Type: Spontaneous
  Country: US (occurrence: US)
  Receive Date: 20171122
  Receipt Date: 20171206
  Transmission Date: 20180321
  Serious: Yes (Hospitalization)
  Sender: FDA-Public Use
  Company Number: US-ACCORD-061297

PATIENT
  Age: 56 Year
  Sex: Female
  Weight: 58 kg

DRUGS (9)
  1. LEVETIRACETAM. [Concomitant]
     Active Substance: LEVETIRACETAM
     Indication: EPILEPSY
     Dosage: 500 MG TWICE A DAY
  2. CALCIUM CARBONATE. [Concomitant]
     Active Substance: CALCIUM CARBONATE
     Dosage: 500 MG TWICE A DAY
  3. MACROGOL [Concomitant]
     Active Substance: POLYETHYLENE GLYCOLS
     Dosage: 17 G DAILY
  4. ALUMINIUM HYDROXIDE/MAGNESIUM HYDROXIDE [Concomitant]
     Dosage: 1000 MG/5 ML
  5. LEVOTHYROXINE. [Concomitant]
     Active Substance: LEVOTHYROXINE
     Dosage: 88 MG DAILY
  6. TOPIRAMATE. [Suspect]
     Active Substance: TOPIRAMATE
     Indication: EPILEPSY
     Dosage: 200 MG IN MORNING AND 300 MG AT BEDTIME
  7. ERGOCALCIFEROL. [Concomitant]
     Active Substance: ERGOCALCIFEROL
     Dosage: 400 IU DAILY
  8. METHENAMINE [Concomitant]
     Active Substance: METHENAMINE
     Dosage: 1000 MG DAILY
  9. PHENOBARBITAL. [Interacting]
     Active Substance: PHENOBARBITAL
     Indication: EPILEPSY
     Dosage: 32.4 MG IN THE MORNING AND AFTERNOON WITH 64.8 MG AT BEDTIME
     Dates: end: 20160106

REACTIONS (3)
  - Hypothermia [Recovered/Resolved]
  - Drug interaction [Unknown]
  - Hyperammonaemia [Recovering/Resolving]

NARRATIVE: CASE EVENT DATE: 2015
